FAERS Safety Report 4668280-5 (Version None)
Quarter: 2005Q2

REPORT INFORMATION
  Report Type: 
  Country: None (occurrence: None)
  Receive Date: 20050523
  Receipt Date: 20050512
  Transmission Date: 20051028
  Serious: Yes (Other)
  Sender: FDA-Public Use
  Company Number: PHFR2005GB01793

PATIENT
  Sex: Female

DRUGS (1)
  1. NEORAL [Suspect]
     Indication: ANAPHYLACTIC REACTION
     Dosage: 150 MG, BID
     Route: 048

REACTIONS (2)
  - HIRSUTISM [None]
  - INTRACRANIAL PRESSURE INCREASED [None]
